FAERS Safety Report 5678616-4 (Version None)
Quarter: 2008Q1

REPORT INFORMATION
  Report Type: 
  Country: None (occurrence: None)
  Receive Date: 20080325
  Receipt Date: 20080312
  Transmission Date: 20080703
  Serious: Yes (Life-Threatening, Hospitalization)
  Sender: FDA-Public Use
  Company Number: JP-AMGEN-US262630

PATIENT
  Sex: Male

DRUGS (15)
  1. ENBREL [Suspect]
     Indication: RHEUMATOID ARTHRITIS
     Route: 058
     Dates: start: 20071220, end: 20071227
  2. PREDNISOLONE [Suspect]
     Indication: RHEUMATOID ARTHRITIS
     Route: 048
     Dates: start: 20040527
  3. PREDNISOLONE [Suspect]
     Route: 048
     Dates: start: 20040101, end: 20041001
  4. PREDNISOLONE [Suspect]
     Route: 048
     Dates: start: 20041001, end: 20060216
  5. PREDNISOLONE [Suspect]
     Route: 048
     Dates: start: 20060216, end: 20060427
  6. PREDNISOLONE [Suspect]
     Route: 048
     Dates: start: 20060427, end: 20070118
  7. PREDNISOLONE [Suspect]
     Route: 048
     Dates: start: 20070118, end: 20071227
  8. SPIRIVA [Suspect]
     Route: 055
     Dates: start: 20070517, end: 20071227
  9. CYANOCOBALAMIN [Concomitant]
     Indication: NEUROPATHY PERIPHERAL
     Route: 048
     Dates: start: 20041007, end: 20071227
  10. ALUMINIUM HYDROXIDE W/ MAGNESIUM HYDROXIDE [Concomitant]
     Indication: REFLUX GASTRITIS
     Route: 048
     Dates: start: 20040819, end: 20071227
  11. DIOVAN [Concomitant]
     Indication: HYPERTENSION
     Route: 048
     Dates: start: 20060811, end: 20071227
  12. CORINAEL [Concomitant]
     Indication: HYPERTENSION
     Route: 048
     Dates: start: 20060811, end: 20071227
  13. RHEUMATREX [Concomitant]
     Indication: RHEUMATOID ARTHRITIS
     Route: 048
     Dates: start: 20040617, end: 20040715
  14. RHEUMATREX [Concomitant]
     Route: 048
     Dates: start: 20040715, end: 20071227
  15. VOLTAREN [Concomitant]
     Indication: PAIN
     Route: 048
     Dates: start: 20051124, end: 20071227

REACTIONS (2)
  - ACUTE MYOCARDIAL INFARCTION [None]
  - CARDIAC ARREST [None]
